APPROVED DRUG PRODUCT: FILSUVEZ
Active Ingredient: BIRCH TRITERPENES
Strength: 10%
Dosage Form/Route: GEL;TOPICAL
Application: N215064 | Product #001
Applicant: CHIESI FARMACEUTICI SPA
Approved: Dec 18, 2023 | RLD: Yes | RS: Yes | Type: RX

PATENTS:
Patent 11266660 | Expires: Jan 4, 2039
Patent 9827214 | Expires: Nov 24, 2030
Patent 9352041 | Expires: Nov 24, 2030
Patent 12268695 | Expires: Jan 4, 2039
Patent 11083733 | Expires: Jan 4, 2039
Patent 8828444 | Expires: Jun 21, 2026

EXCLUSIVITY:
Code: NCE | Date: Dec 18, 2028
Code: ODE-460 | Date: Dec 18, 2030